FAERS Safety Report 4990442-8 (Version None)
Quarter: 2006Q2

REPORT INFORMATION
  Report Type: 
  Country: None (occurrence: None)
  Receive Date: 20060501
  Receipt Date: 20060501
  Transmission Date: 20061013
  Serious: No
  Sender: FDA-Public Use
  Company Number: None

PATIENT

DRUGS (1)
  1. PHYTONADIONE [Suspect]

REACTIONS (1)
  - ACCIDENTAL NEEDLE STICK [None]
